FAERS Safety Report 4378091-6 (Version None)
Quarter: 2004Q2

REPORT INFORMATION
  Report Type: 
  Country: None (occurrence: None)
  Receive Date: 20040609
  Receipt Date: 20040527
  Transmission Date: 20050107
  Serious: Yes (Hospitalization)
  Sender: FDA-Public Use
  Company Number: 200410355BNE

PATIENT
  Age: 73 Year
  Sex: Male

DRUGS (1)
  1. CLOTRIMAZOLE [Suspect]
     Indication: INTERTRIGO
     Dosage: NI, NI, TOPICAL
     Route: 061
     Dates: start: 20040312, end: 20040315

REACTIONS (3)
  - OEDEMA GENITAL [None]
  - RASH [None]
  - SCROTAL OEDEMA [None]
